FAERS Safety Report 5448044-5 (Version None)
Quarter: 2007Q3

REPORT INFORMATION
  Report Type: 
  Country: None (occurrence: None)
  Receive Date: 20070910
  Receipt Date: 20070831
  Transmission Date: 20080115
  Serious: Yes (Hospitalization)
  Sender: FDA-Public Use
  Company Number: PL-MERCK-0709POL00003

PATIENT
  Age: 62 Year
  Sex: Male

DRUGS (11)
  1. ZOCOR [Suspect]
     Route: 048
  2. FACTOR VIII [Concomitant]
     Route: 065
  3. FACTOR VIII [Concomitant]
     Route: 065
  4. NITROGLYCERIN [Concomitant]
     Route: 048
  5. NITROGLYCERIN [Concomitant]
     Route: 041
  6. METOPROLOL [Concomitant]
     Route: 065
  7. PERINDOPRIL [Concomitant]
     Route: 065
  8. AMLODIPINE BESYLATE [Concomitant]
     Route: 065
  9. ASPIRIN [Suspect]
     Route: 065
  10. CLOPIDOGREL BISULFATE [Suspect]
     Indication: ANTIPLATELET THERAPY
     Route: 065
  11. CLOPIDOGREL BISULFATE [Suspect]
     Route: 065

REACTIONS (5)
  - ANGINA PECTORIS [None]
  - CORONARY ARTERY STENOSIS [None]
  - HAEMARTHROSIS [None]
  - HAEMORRHAGE SUBCUTANEOUS [None]
  - PETECHIAE [None]
